FAERS Safety Report 18881178 (Version 1)
Quarter: 2021Q1

REPORT INFORMATION
  Report Type: Spontaneous
  Country: JP (occurrence: JP)
  Receive Date: 20210212
  Receipt Date: 20210212
  Transmission Date: 20210420
  Serious: Yes (Hospitalization)
  Sender: FDA-Public Use
  Company Number: JP-B.I. PHARMACEUTICALS,INC./RIDGEFIELD-2021-BI-082675

PATIENT
  Age: 75 Year
  Sex: Female
  Weight: 34 kg

DRUGS (5)
  1. TIARAMIDE HYDROCHLORIDE [Suspect]
     Active Substance: TIARAMIDE HYDROCHLORIDE
     Indication: RHEUMATOID ARTHRITIS
     Dosage: UNK, UNK
     Route: 048
     Dates: start: 2003, end: 2003
  2. LOXONIN [Suspect]
     Active Substance: LOXOPROFEN SODIUM
     Route: 048
     Dates: start: 200403
  3. VOLTAREN [DICLOFENAC] [Suspect]
     Active Substance: DICLOFENAC SODIUM
     Indication: RHEUMATOID ARTHRITIS
     Route: 054
  4. LOXONIN [Suspect]
     Active Substance: LOXOPROFEN SODIUM
     Indication: RHEUMATOID ARTHRITIS
     Dosage: UNK, UNK
     Route: 048
     Dates: end: 2001
  5. MOBIC [Suspect]
     Active Substance: MELOXICAM
     Indication: RHEUMATOID ARTHRITIS
     Dosage: UNK, UNK
     Route: 048
     Dates: start: 200103, end: 2003

REACTIONS (9)
  - Melaena [Recovered/Resolved]
  - Anaemia [Recovered/Resolved]
  - Red blood cell count decreased [Recovered/Resolved]
  - Large intestinal ulcer [Recovered/Resolved]
  - Haematocrit decreased [Recovered/Resolved]
  - Intestinal stenosis [Recovered/Resolved]
  - Colectomy [Recovered/Resolved]
  - Haemoglobin decreased [Recovered/Resolved]
  - Blood sodium decreased [Unknown]

NARRATIVE: CASE EVENT DATE: 200109
